FAERS Safety Report 7183873-1 (Version None)
Quarter: 2010Q4

REPORT INFORMATION
  Report Type: 
  Country: None (occurrence: None)
  Receive Date: 20101222
  Receipt Date: 20101217
  Transmission Date: 20110411
  Serious: Yes (Death)
  Sender: FDA-Public Use
  Company Number: AU-NAPPMUNDI-GBR-2010-0007491

PATIENT
  Age: 22 Year
  Sex: Male

DRUGS (7)
  1. NON-PMN THEOPHYLLINE [Suspect]
  2. DIAZEPAM [Interacting]
  3. METHADONE [Interacting]
  4. PARACETAMOL [Interacting]
  5. CODEINE [Interacting]
  6. NORDIAZEPAM [Interacting]
  7. SERTRALINE [Interacting]

REACTIONS (1)
  - DRUG INTERACTION [None]
